FAERS Safety Report 7348018-3 (Version None)
Quarter: 2011Q1

REPORT INFORMATION
  Report Type: 
  Country: None (occurrence: None)
  Receive Date: 20110311
  Receipt Date: 20110308
  Transmission Date: 20110831
  Serious: No
  Sender: FDA-Public Use
  Company Number: US-B.I. PHARMACEUTICALS,INC./RIDGEFIELD-2010-BP-14116BP

PATIENT
  Sex: Female

DRUGS (4)
  1. PULMICORT [Concomitant]
     Indication: ASTHMA
     Route: 055
  2. PRADAXA [Suspect]
     Indication: ATRIAL FIBRILLATION
     Dosage: 300 MG
     Route: 048
     Dates: start: 20101124, end: 20101206
  3. MULTAQ [Concomitant]
     Indication: ARRHYTHMIA
     Route: 048
  4. EXFORGE [Concomitant]
     Indication: HYPERTENSION
     Route: 048

REACTIONS (3)
  - HAEMATOCHEZIA [None]
  - ARTHRALGIA [None]
  - EPISTAXIS [None]
